FAERS Safety Report 4560488-2 (Version None)
Quarter: 2005Q1

REPORT INFORMATION
  Report Type: 
  Country: None (occurrence: None)
  Receive Date: 20050125
  Receipt Date: 20050118
  Transmission Date: 20050727
  Serious: Yes (Other)
  Sender: FDA-Public Use
  Company Number: AU-MERCK-0501AUS00131

PATIENT
  Sex: Female

DRUGS (4)
  1. VIOXX [Suspect]
     Route: 048
     Dates: start: 20000101, end: 20020101
  2. PREDNISONE [Concomitant]
     Route: 048
  3. INSULIN [Concomitant]
     Route: 051
  4. LEFLUNOMIDE [Concomitant]
     Route: 048

REACTIONS (1)
  - CEREBROVASCULAR ACCIDENT [None]
